FAERS Safety Report 24213167 (Version 1)
Quarter: 2024Q3

REPORT INFORMATION
  Report Type: Spontaneous
  Country: US (occurrence: None)
  Receive Date: 20240814
  Receipt Date: 20240814
  Transmission Date: 20241016
  Serious: Yes (Other)
  Sender: Public
  Company Number: None

PATIENT
  Age: 66 Year
  Sex: Female

DRUGS (3)
  1. LENALIDOMIDE [Suspect]
     Active Substance: LENALIDOMIDE
     Indication: Plasma cell myeloma
     Dates: start: 20230802
  2. DEXAMETHASONE [Concomitant]
  3. ISATUXIMAB [Concomitant]

REACTIONS (2)
  - Insomnia [None]
  - Muscle twitching [None]

NARRATIVE: CASE EVENT DATE: 20240814
